FAERS Safety Report 8537112-7 (Version None)
Quarter: 2012Q3

REPORT INFORMATION
  Report Type: 
  Country: None (occurrence: None)
  Receive Date: 20120725
  Receipt Date: 20120719
  Transmission Date: 20120928
  Serious: Yes (Death)
  Sender: FDA-Public Use
  Company Number: JP-PFIZER INC-2012174345

PATIENT
  Age: 72 Year
  Sex: Male
  Weight: 49 kg

DRUGS (7)
  1. TEMSIROLIMUS [Suspect]
     Indication: METASTATIC RENAL CELL CARCINOMA
     Dosage: 25 MG, UNK
     Route: 042
     Dates: start: 20111031
  2. POLARAMINE [Concomitant]
     Indication: PROPHYLAXIS
     Dosage: 5 MG, 1X/DAY
     Route: 042
  3. TEMSIROLIMUS [Suspect]
     Dosage: 25 MG, UNK
     Route: 042
     Dates: start: 20111206, end: 20120124
  4. TEMSIROLIMUS [Suspect]
     Dosage: 25 MG, UNK
     Route: 042
     Dates: start: 20111107
  5. TEMSIROLIMUS [Suspect]
     Dosage: 25 MG, UNK
     Route: 042
     Dates: start: 20111114
  6. TEMSIROLIMUS [Suspect]
     Dosage: 25 MG, WEEKLY
     Dates: start: 20120207, end: 20120605
  7. TEMSIROLIMUS [Suspect]
     Dosage: 25 MG, UNK
     Route: 042
     Dates: start: 20111122

REACTIONS (1)
  - DEATH [None]
